FAERS Safety Report 10153407 (Version 1)
Quarter: 2014Q2

REPORT INFORMATION
  Report Type: Spontaneous
  Country: US (occurrence: US)
  Receive Date: 20140505
  Receipt Date: 20140505
  Transmission Date: 20141212
  Serious: No
  Sender: FDA-Public Use
  Company Number: US-ASTRAZENECA-2014SE04521

PATIENT
  Age: 69 Year
  Sex: Male
  Weight: 90.7 kg

DRUGS (3)
  1. OMEPRAZOLE OTC [Suspect]
     Indication: DYSPEPSIA
     Dosage: 20.6 MG DAILY
     Route: 048
  2. SYMBICORT [Suspect]
     Indication: ASTHMA
     Dosage: 160/4.5 MCG 1 PUFF BID
     Route: 055
     Dates: start: 20140117
  3. SYMBICORT [Suspect]
     Indication: BRONCHITIS
     Dosage: 160/4.5 MCG 1 PUFF BID
     Route: 055
     Dates: start: 20140117

REACTIONS (5)
  - Asthma [Unknown]
  - Bronchitis [Unknown]
  - Wrong technique in drug usage process [Recovered/Resolved]
  - Circumstance or information capable of leading to medication error [Recovered/Resolved]
  - Intentional product misuse [Not Recovered/Not Resolved]
